FAERS Safety Report 6287070-3 (Version None)
Quarter: 2009Q3

REPORT INFORMATION
  Report Type: 
  Country: None (occurrence: None)
  Receive Date: 20090727
  Receipt Date: 20090727
  Transmission Date: 20100115
  Serious: Yes (Other)
  Sender: FDA-Public Use
  Company Number: None

PATIENT
  Sex: Male
  Weight: 76.4 kg

DRUGS (1)
  1. AVODART [Suspect]
     Dosage: 0.5 MG DAILY P.O
     Route: 048
     Dates: start: 20090101

REACTIONS (2)
  - MYOPIA [None]
  - VISUAL ACUITY REDUCED [None]
